FAERS Safety Report 21017352 (Version 1)
Quarter: 2022Q2

REPORT INFORMATION
  Report Type: Spontaneous
  Country: AR (occurrence: AR)
  Receive Date: 20220628
  Receipt Date: 20220628
  Transmission Date: 20220720
  Serious: Yes (Other)
  Sender: FDA-Public Use
  Company Number: AR-PFIZER INC-PV202200008340

PATIENT
  Age: 10 Year
  Sex: Female

DRUGS (1)
  1. GENOTROPIN [Suspect]
     Active Substance: SOMATROPIN
     Indication: Foetal growth restriction
     Dosage: 1 MG TO 1.4 MG, 7 TIMES PER WEEK
     Dates: start: 20211129

REACTIONS (4)
  - Wrong technique in device usage process [Unknown]
  - Injection site pain [Unknown]
  - Device mechanical issue [Unknown]
  - Treatment noncompliance [Unknown]
